FAERS Safety Report 18498543 (Version 9)
Quarter: 2025Q2

REPORT INFORMATION
  Report Type: Report from Study
  Country: US (occurrence: US)
  Receive Date: 20201112
  Receipt Date: 20250627
  Transmission Date: 20250716
  Serious: Yes (Other)
  Sender: TAKEDA
  Company Number: US-TAKEDA-2020TUS045180

PATIENT
  Age: 73 Year
  Sex: Female
  Weight: 62 kg

DRUGS (38)
  1. HUMAN IMMUNOGLOBULIN G [Suspect]
     Active Substance: HUMAN IMMUNOGLOBULIN G
     Indication: Immunodeficiency common variable
     Dosage: 12 GRAM, 1/WEEK
  2. DICLOFENAC SODIUM [Concomitant]
     Active Substance: DICLOFENAC SODIUM
  3. VALACYCLOVIR [Concomitant]
     Active Substance: VALACYCLOVIR HYDROCHLORIDE
  4. ZYRTEC [Concomitant]
     Active Substance: CETIRIZINE HYDROCHLORIDE
  5. FAMOTIDINE [Concomitant]
     Active Substance: FAMOTIDINE
  6. MECLIZINE HYDROCHLORIDE [Concomitant]
     Active Substance: MECLIZINE HYDROCHLORIDE
  7. CVS coenzyme q 10 [Concomitant]
  8. NEXIUM [Concomitant]
     Active Substance: ESOMEPRAZOLE MAGNESIUM
  9. ACETAMINOPHEN\HYDROCODONE [Concomitant]
     Active Substance: ACETAMINOPHEN\HYDROCODONE
  10. AMOXICILLIN [Concomitant]
     Active Substance: AMOXICILLIN
  11. Calcium plus d3 [Concomitant]
  12. BREO ELLIPTA [Concomitant]
     Active Substance: FLUTICASONE FUROATE\VILANTEROL TRIFENATATE
  13. BIOTIN [Concomitant]
     Active Substance: BIOTIN
  14. LOSARTAN POTASSIUM [Concomitant]
     Active Substance: LOSARTAN POTASSIUM
  15. CRESTOR [Concomitant]
     Active Substance: ROSUVASTATIN CALCIUM
  16. BENEFIBER [Concomitant]
     Active Substance: STARCH, WHEAT
  17. METFORMIN HYDROCHLORIDE [Concomitant]
     Active Substance: METFORMIN HYDROCHLORIDE
  18. IRON [Concomitant]
     Active Substance: IRON
  19. MONTELUKAST SODIUM [Concomitant]
     Active Substance: MONTELUKAST SODIUM
  20. HERBALS\TURMERIC [Concomitant]
     Active Substance: HERBALS\TURMERIC
  21. CHONDROITIN SULFATE (BOVINE)\GLUCOSAMINE HYDROCHLORIDE [Concomitant]
     Active Substance: CHONDROITIN SULFATE (BOVINE)\GLUCOSAMINE HYDROCHLORIDE
  22. KRILL OIL [Concomitant]
     Active Substance: DIETARY SUPPLEMENT\KRILL OIL
  23. POLYETHYLENE GLYCOL [Concomitant]
     Active Substance: POLYETHYLENE GLYCOL
  24. MAGNESIUM [Concomitant]
     Active Substance: MAGNESIUM
  25. ESTRACE [Concomitant]
     Active Substance: ESTRADIOL
  26. CELECOXIB [Concomitant]
     Active Substance: CELECOXIB
  27. AZITHROMYCIN [Concomitant]
     Active Substance: AZITHROMYCIN
  28. VITAMIN D3 [Concomitant]
     Active Substance: CHOLECALCIFEROL
  29. LACTOSE [Concomitant]
     Active Substance: LACTOSE
  30. EPINEPHRINE [Concomitant]
     Active Substance: EPINEPHRINE
  31. MAGNESIUM OXIDE [Concomitant]
     Active Substance: MAGNESIUM OXIDE
  32. VITAMIN B COMPLEX [Concomitant]
     Active Substance: CYANOCOBALAMIN\DEXPANTHENOL\NIACINAMIDE\PYRIDOXINE HYDROCHLORIDE\RIBOFLAVIN 5^-PHOSPHATE SODIUM\THIA
  33. LOSARTAN [Concomitant]
     Active Substance: LOSARTAN
  34. RANITIDINE [Concomitant]
     Active Substance: RANITIDINE
  35. OXYBUTYNIN [Concomitant]
     Active Substance: OXYBUTYNIN
  36. ESTRADIOL [Concomitant]
     Active Substance: ESTRADIOL
  37. DICLOFENAC [Concomitant]
     Active Substance: DICLOFENAC
  38. METFORMIN [Concomitant]
     Active Substance: METFORMIN HYDROCHLORIDE

REACTIONS (23)
  - Carpal tunnel syndrome [Unknown]
  - COVID-19 [Unknown]
  - Eye disorder [Unknown]
  - Illness [Unknown]
  - Tooth disorder [Unknown]
  - Abscess limb [Unknown]
  - Productive cough [Unknown]
  - Multiple allergies [Unknown]
  - Infusion site discharge [Unknown]
  - Hepatic enzyme increased [Unknown]
  - Fall [Unknown]
  - Joint injury [Unknown]
  - Arthritis infective [Unknown]
  - Product dose omission issue [Unknown]
  - Inappropriate schedule of product administration [Unknown]
  - Urinary tract infection [Unknown]
  - Infusion site haemorrhage [Unknown]
  - Upper respiratory tract infection [Unknown]
  - Influenza [Unknown]
  - Cough [Unknown]
  - Malaise [Unknown]
  - Infusion site pain [Unknown]
  - Arthralgia [Unknown]

NARRATIVE: CASE EVENT DATE: 20220531
